FAERS Safety Report 9274935 (Version 1)
Quarter: 2013Q2

REPORT INFORMATION
  Report Type: Report from Study
  Country: CA (occurrence: CA)
  Receive Date: 20130507
  Receipt Date: 20130507
  Transmission Date: 20140414
  Serious: Yes (Other)
  Sender: FDA-Public Use
  Company Number: CA-JNJFOC-20130417231

PATIENT
  Age: 30 Year
  Sex: Male
  Weight: 104.33 kg

DRUGS (4)
  1. REMICADE [Suspect]
     Indication: CROHN^S DISEASE
     Dosage: USED FOR 2-3 YEARS, STOPPED IN JAN OR FEB-2012
     Route: 042
     Dates: end: 2012
  2. COUMADIN [Concomitant]
     Indication: BLOOD DISORDER
     Route: 065
     Dates: start: 201201
  3. MEZAVANT [Concomitant]
     Indication: CROHN^S DISEASE
     Dosage: FOR PAST YEAR
     Route: 065
  4. ZOPICLONE [Concomitant]
     Indication: INSOMNIA
     Dosage: FOR PAST 8-9 YEARS
     Route: 065

REACTIONS (2)
  - Testis cancer [Unknown]
  - Weight increased [Not Recovered/Not Resolved]
